FAERS Safety Report 7159002-7 (Version None)
Quarter: 2010Q4

REPORT INFORMATION
  Report Type: 
  Country: None (occurrence: None)
  Receive Date: 20101214
  Receipt Date: 20100723
  Transmission Date: 20110411
  Serious: No
  Sender: FDA-Public Use
  Company Number: US-ASTRAZENECA-2010SE34496

PATIENT
  Sex: Female
  Weight: 61.7 kg

DRUGS (2)
  1. CRESTOR [Suspect]
     Route: 048
     Dates: start: 20090701
  2. CRESTOR [Suspect]
     Route: 048

REACTIONS (1)
  - PAIN IN EXTREMITY [None]
